FAERS Safety Report 9132977 (Version 1)
Quarter: 2013Q1

REPORT INFORMATION
  Report Type: Spontaneous
  Country: US (occurrence: US)
  Receive Date: 20130128
  Receipt Date: 20130128
  Transmission Date: 20140127
  Serious: Yes (Other)
  Sender: FDA-Public Use
  Company Number: US-PFIZER INC-2013028827

PATIENT
  Age: 39 Year
  Sex: Male
  Weight: 68.03 kg

DRUGS (2)
  1. VIAGRA [Suspect]
     Indication: PENILE SIZE REDUCED
     Dosage: 50 MG, AS NEEDED
     Route: 048
     Dates: start: 201301
  2. VIAGRA [Suspect]
     Dosage: 5 TABLETS OF VIAGRA 50 MG TOGETHER AT ONCE (250 MG)
     Route: 048
     Dates: start: 20130122

REACTIONS (4)
  - Incorrect dose administered [Unknown]
  - Penile vascular disorder [Unknown]
  - Penile swelling [Unknown]
  - Skin discolouration [Unknown]
